FAERS Safety Report 16292299 (Version 2)
Quarter: 2019Q2

REPORT INFORMATION
  Report Type: Spontaneous
  Country: US (occurrence: US)
  Receive Date: 20190509
  Receipt Date: 20190603
  Transmission Date: 20190711
  Serious: Yes (Other)
  Sender: FDA-Public Use
  Company Number: US-ALLERGAN-1915628US

PATIENT
  Sex: Female
  Weight: 60.1 kg

DRUGS (12)
  1. MULTIVITAMIN [Concomitant]
     Active Substance: VITAMINS
     Dosage: UNK, QD
     Route: 048
  2. VITAMIN C [Concomitant]
     Active Substance: ASCORBIC ACID
     Dosage: UNK, QD
     Route: 048
  3. BLACK COHOSH [Concomitant]
     Active Substance: BLACK COHOSH
     Dosage: 40 MG
  4. POTASSIUM [Concomitant]
     Active Substance: POTASSIUM
     Dosage: UNK, QD
     Route: 048
  5. LOSARTAN AND HYDROCHLOROTHIAZIDE [Concomitant]
     Active Substance: HYDROCHLOROTHIAZIDE\LOSARTAN POTASSIUM
     Indication: CONJUNCTIVITIS
     Dosage: 12.5 MG, QD
     Route: 048
  6. BIOTIN [Concomitant]
     Active Substance: BIOTIN
     Dosage: 5000 ?G, QD
     Route: 048
  7. ASPIRIN. [Concomitant]
     Active Substance: ASPIRIN
     Dosage: 81 MG, QD
     Route: 048
  8. PREDNISOLONE ACETATE, 1.0% [Suspect]
     Active Substance: PREDNISOLONE ACETATE
     Indication: AMYOTROPHIC LATERAL SCLEROSIS
     Dosage: ONE DOSE
     Route: 047
     Dates: start: 20190205, end: 20190205
  9. MAGNESIUM [Concomitant]
     Active Substance: MAGNESIUM
     Dosage: 250 MG, QD
     Route: 048
  10. COENZYME Q10 [Concomitant]
     Active Substance: UBIDECARENONE
     Dosage: 100 MG, QD
     Route: 048
  11. GARLIC. [Concomitant]
     Active Substance: GARLIC
     Dosage: 1000 MG, QD
     Route: 048
  12. OFLOXACIN, 0.3% [Suspect]
     Active Substance: OFLOXACIN
     Indication: CONJUNCTIVITIS
     Dosage: 2 GTT, QID
     Route: 047
     Dates: start: 20190131, end: 20190204

REACTIONS (27)
  - Peripheral swelling [Recovered/Resolved]
  - Headache [Recovered/Resolved]
  - Malaise [Unknown]
  - Low density lipoprotein increased [Unknown]
  - Chest discomfort [Recovered/Resolved]
  - Feeling abnormal [Recovered/Resolved]
  - Ear discomfort [Unknown]
  - Hypoacusis [Unknown]
  - Depression [Recovered/Resolved]
  - Fatigue [Recovered/Resolved]
  - Blood pressure increased [Unknown]
  - Glucose tolerance impaired [Unknown]
  - Sensation of foreign body [Recovered/Resolved]
  - Parosmia [Recovered/Resolved]
  - Chest pain [Recovered/Resolved]
  - Herpes zoster [Unknown]
  - Pain [Recovered/Resolved]
  - Exostosis [Unknown]
  - Joint swelling [Recovering/Resolving]
  - Dysgeusia [Recovered/Resolved]
  - Acute kidney injury [Unknown]
  - Tendonitis [Recovering/Resolving]
  - Blood cholesterol increased [Unknown]
  - Pain in extremity [Not Recovered/Not Resolved]
  - Off label use [Unknown]
  - Agitation [Recovered/Resolved]
  - Scleritis [Unknown]

NARRATIVE: CASE EVENT DATE: 201901
